FAERS Safety Report 18746640 (Version 1)
Quarter: 2021Q1

REPORT INFORMATION
  Report Type: Spontaneous
  Country: CA (occurrence: CA)
  Receive Date: 20210115
  Receipt Date: 20210115
  Transmission Date: 20210419
  Serious: Yes (Other)
  Sender: FDA-Public Use
  Company Number: CA-PURDUE-USA-2020-0197633

PATIENT

DRUGS (1)
  1. OXYCONTIN [Suspect]
     Active Substance: OXYCODONE HYDROCHLORIDE
     Indication: PAIN MANAGEMENT
     Dosage: UNKNOWN
     Route: 048

REACTIONS (6)
  - Depression [Unknown]
  - Impaired work ability [Unknown]
  - Anxiety [Unknown]
  - Disturbance in attention [Unknown]
  - Brain injury [Unknown]
  - Drug dependence [Unknown]
